FAERS Safety Report 10599137 (Version 1)
Quarter: 2014Q4

REPORT INFORMATION
  Report Type: Spontaneous
  Country: US (occurrence: US)
  Receive Date: 20141121
  Receipt Date: 20141121
  Transmission Date: 20150529
  Serious: No
  Sender: FDA-Public Use
  Company Number: US-VIVUS-2014V1000549

PATIENT
  Age: 73 Year
  Sex: Male
  Weight: 81.72 kg

DRUGS (6)
  1. STENDRA [Suspect]
     Active Substance: AVANAFIL
     Indication: ERECTILE DYSFUNCTION
     Route: 048
     Dates: start: 20140921, end: 20140921
  2. TAMSULOSIN [Concomitant]
     Active Substance: TAMSULOSIN
  3. AZILECT [Concomitant]
     Active Substance: RASAGILINE MESYLATE
  4. PRAMIPEXOLE [Concomitant]
     Active Substance: PRAMIPEXOLE
  5. SIMVASTATIN. [Concomitant]
     Active Substance: SIMVASTATIN
  6. STENDRA [Suspect]
     Active Substance: AVANAFIL
     Route: 048
     Dates: start: 20140921, end: 20140921

REACTIONS (2)
  - Drug effect delayed [Unknown]
  - Drug effect incomplete [Unknown]

NARRATIVE: CASE EVENT DATE: 20140921
